FAERS Safety Report 17057904 (Version 2)
Quarter: 2020Q1

REPORT INFORMATION
  Report Type: Spontaneous
  Country: FR (occurrence: FR)
  Receive Date: 20191121
  Receipt Date: 20200109
  Transmission Date: 20200409
  Serious: Yes (Hospitalization, Other)
  Sender: FDA-Public Use
  Company Number: FR-ALEXION PHARMACEUTICALS INC.-A201917191

PATIENT
  Age: 72 Year
  Sex: Male
  Weight: 100 kg

DRUGS (4)
  1. SOLIRIS [Suspect]
     Active Substance: ECULIZUMAB
     Dosage: UNK, QW
     Route: 065
     Dates: start: 2018
  2. SOLIRIS [Suspect]
     Active Substance: ECULIZUMAB
     Indication: PAROXYSMAL NOCTURNAL HAEMOGLOBINURIA
     Dosage: UNK
     Route: 065
     Dates: start: 20070326
  3. SOLIRIS [Suspect]
     Active Substance: ECULIZUMAB
     Dosage: UNK, Q2W
     Route: 065
  4. SOLIRIS [Suspect]
     Active Substance: ECULIZUMAB
     Dosage: 900 MG, EVERY 5 DAYS
     Route: 065

REACTIONS (19)
  - Angina unstable [Unknown]
  - Blood albumin abnormal [Unknown]
  - White blood cell count abnormal [Unknown]
  - Aspartate aminotransferase increased [Unknown]
  - Prealbumin abnormal [Unknown]
  - Blood bilirubin increased [Unknown]
  - Haemoglobin decreased [Unknown]
  - Asthenia [Recovered/Resolved]
  - Hyponatraemia [Unknown]
  - C-reactive protein abnormal [Unknown]
  - Protein total abnormal [Unknown]
  - Condition aggravated [Recovered/Resolved]
  - Haemoglobinuria [Recovered/Resolved]
  - Haemolysis [Unknown]
  - Bilirubin conjugated increased [Unknown]
  - Pyrexia [Recovered/Resolved]
  - Lymphocyte count abnormal [Unknown]
  - Mean cell volume abnormal [Unknown]
  - Neutrophil count abnormal [Unknown]

NARRATIVE: CASE EVENT DATE: 2013
